FAERS Safety Report 7482998-0 (Version None)
Quarter: 2011Q2

REPORT INFORMATION
  Report Type: 
  Country: None (occurrence: None)
  Receive Date: 20110516
  Receipt Date: 20110413
  Transmission Date: 20111010
  Serious: No
  Sender: FDA-Public Use
  Company Number: US-BAYER-2011-033325

PATIENT
  Age: 85 Year
  Sex: Male
  Weight: 95 kg

DRUGS (3)
  1. GABAPENTIN [Concomitant]
  2. CRESTOR [Concomitant]
  3. ALEVE (CAPLET) [Suspect]
     Indication: MYALGIA
     Dosage: 4 DF, UNK
     Route: 048

REACTIONS (1)
  - NO ADVERSE EVENT [None]
